FAERS Safety Report 26069698 (Version 1)
Quarter: 2025Q4

REPORT INFORMATION
  Report Type: Spontaneous
  Country: US (occurrence: None)
  Receive Date: 20251119
  Receipt Date: 20251119
  Transmission Date: 20260118
  Serious: No
  Sender: FDA-CTU
  Company Number: None

PATIENT
  Sex: Female
  Weight: 70.2 kg

DRUGS (11)
  1. AJOVY [Suspect]
     Active Substance: FREMANEZUMAB-VFRM
     Indication: Migraine prophylaxis
     Dosage: OTHER QUANTITY : 1 INJECTION(S);?OTHER FREQUENCY : ONCE;?
     Route: 058
     Dates: start: 20250918, end: 20250918
  2. GABAPENTIN [Concomitant]
     Active Substance: GABAPENTIN
  3. MONTELUKAST [Concomitant]
     Active Substance: MONTELUKAST
  4. MIRENA [Concomitant]
     Active Substance: LEVONORGESTREL
  5. LYSINE [Concomitant]
     Active Substance: LYSINE
  6. FISH OIL [Concomitant]
     Active Substance: FISH OIL
  7. MAGNESIUM OXIDE [Concomitant]
     Active Substance: MAGNESIUM OXIDE
  8. VITAMIN B2 [Concomitant]
     Active Substance: RIBOFLAVIN
  9. COENZYME Q10 [Concomitant]
     Active Substance: DIETARY SUPPLEMENT\UBIDECARENONE
  10. LEVOCETIRIZINE [Concomitant]
     Active Substance: LEVOCETIRIZINE
  11. VITAMINS [Concomitant]
     Active Substance: VITAMINS

REACTIONS (8)
  - Tongue disorder [None]
  - Tongue coated [None]
  - Abdominal pain [None]
  - Diarrhoea [None]
  - Oropharyngeal erythema [None]
  - Pharyngeal swelling [None]
  - Injection site pain [None]
  - Gastrooesophageal reflux disease [None]
